FAERS Safety Report 9844195 (Version 3)
Quarter: 2014Q2

REPORT INFORMATION
  Report Type: Spontaneous
  Country: US (occurrence: US)
  Receive Date: 20140127
  Receipt Date: 20140623
  Transmission Date: 20141212
  Serious: Yes (Hospitalization, Disabling, Other)
  Sender: FDA-Public Use
  Company Number: US-BIOGENIDEC-2014BI007472

PATIENT
  Age: 59 Year
  Sex: Female

DRUGS (7)
  1. TECFIDERA [Suspect]
     Indication: MULTIPLE SCLEROSIS
     Dates: start: 20130607
  2. TECFIDERA [Suspect]
     Indication: MULTIPLE SCLEROSIS
     Route: 048
     Dates: start: 20130814
  3. AVONEX [Concomitant]
     Dates: start: 19990221, end: 20000202
  4. AVONEX [Concomitant]
     Dates: start: 20030602, end: 20070517
  5. AVONEX [Concomitant]
     Dates: start: 20091204, end: 20100514
  6. AVONEX [Concomitant]
     Dates: start: 20100827
  7. AVONEX [Concomitant]
     Dates: end: 20130607

REACTIONS (2)
  - Depression [Not Recovered/Not Resolved]
  - Disability [Not Recovered/Not Resolved]
